FAERS Safety Report 7007593-9 (Version None)
Quarter: 2010Q3

REPORT INFORMATION
  Report Type: 
  Country: None (occurrence: None)
  Receive Date: 20100917
  Receipt Date: 20100916
  Transmission Date: 20110219
  Serious: Yes (Other)
  Sender: FDA-Public Use
  Company Number: WAES 0801USA00863

PATIENT
  Age: 60 Year
  Sex: Female

DRUGS (2)
  1. HYZAAR [Suspect]
     Indication: HYPERTENSION
     Dosage: 1 DOSE/DAILY, PO
     Route: 048
     Dates: start: 20071126, end: 20071203
  2. NORVASC [Concomitant]

REACTIONS (1)
  - HYPOAESTHESIA ORAL [None]
